FAERS Safety Report 22146764 (Version 3)
Quarter: 2023Q4

REPORT INFORMATION
  Report Type: Spontaneous
  Country: US (occurrence: US)
  Receive Date: 20230328
  Receipt Date: 20231120
  Transmission Date: 20240110
  Serious: Yes (Other)
  Sender: FDA-Public Use
  Company Number: US-PFIZER INC-2021313617

PATIENT
  Age: 77 Year
  Sex: Female

DRUGS (2)
  1. IBRANCE [Suspect]
     Active Substance: PALBOCICLIB
     Dosage: 125 MG
  2. IBRANCE [Suspect]
     Active Substance: PALBOCICLIB
     Dosage: 125 MG, CYCLIC, (TAKE ON TAB ORALLY DAILY DAYS 1-21 OF EACH 28 DAY CYCLE)
     Route: 048

REACTIONS (4)
  - Neuropathy peripheral [Recovered/Resolved]
  - Diabetes mellitus [Unknown]
  - Hypoaesthesia [Unknown]
  - Product dispensing error [Unknown]
